FAERS Safety Report 4658179-2 (Version None)
Quarter: 2005Q2

REPORT INFORMATION
  Report Type: 
  Country: None (occurrence: None)
  Receive Date: 20050504
  Receipt Date: 20040907
  Transmission Date: 20051028
  Serious: Yes (Other)
  Sender: FDA-Public Use
  Company Number: PHEH2004US09781

PATIENT
  Sex: Male

DRUGS (1)
  1. DIOVAN HCT [Suspect]
     Dosage: ONE TABLET= 160/12.5 MG, ORAL
     Route: 048

REACTIONS (2)
  - OEDEMA MOUTH [None]
  - SWELLING FACE [None]
